FAERS Safety Report 24319062 (Version 6)
Quarter: 2024Q4

REPORT INFORMATION
  Report Type: Report from Study
  Country: CA (occurrence: CA)
  Receive Date: 20240913
  Receipt Date: 20241027
  Transmission Date: 20250115
  Serious: Yes (Hospitalization, Other)
  Sender: HLS THERAPEUTICS
  Company Number: CA-HLS-202402255

PATIENT
  Age: 60 Year
  Sex: Male

DRUGS (3)
  1. CLOZARIL [Suspect]
     Active Substance: CLOZAPINE
     Indication: Product used for unknown indication
     Route: 048
     Dates: start: 20240715, end: 20240906
  2. CLONAZEPAM [Concomitant]
     Active Substance: CLONAZEPAM
     Indication: Product used for unknown indication
     Route: 065
  3. MIRTAZAPINE [Concomitant]
     Active Substance: MIRTAZAPINE
     Indication: Product used for unknown indication
     Route: 065

REACTIONS (9)
  - Neutropenia [Recovered/Resolved]
  - Atrial fibrillation [Unknown]
  - Fatigue [Unknown]
  - Haematocrit decreased [Unknown]
  - Blood sodium decreased [Unknown]
  - Mean cell haemoglobin concentration increased [Unknown]
  - Platelet count decreased [Unknown]
  - Syncope [Unknown]
  - Leukopenia [Recovered/Resolved]

NARRATIVE: CASE EVENT DATE: 20240905
